FAERS Safety Report 4455933-7 (Version None)
Quarter: 2004Q3

REPORT INFORMATION
  Report Type: 
  Country: None (occurrence: None)
  Receive Date: 20040830
  Receipt Date: 20040624
  Transmission Date: 20050211
  Serious: No
  Sender: FDA-Public Use
  Company Number: 207471

PATIENT

DRUGS (7)
  1. XOLAIR [Suspect]
     Indication: ASTHMA
     Dosage: 300 MG, Q4W, SUBCUTANEOUS
     Route: 058
     Dates: start: 20031001
  2. ADVAIR (SALMETEROL XINAFOATE, FLUTICASONE PROPIONATE) [Concomitant]
  3. NEXIUM [Concomitant]
  4. FLONASE (FLUTIASONE PROPIONATE) [Concomitant]
  5. ZYRTEC [Concomitant]
  6. SINGULAIR [Concomitant]
  7. ALBUTEROL (ALBUTEROL, ALBUTEROL SULFATE) [Concomitant]

REACTIONS (3)
  - CHEST DISCOMFORT [None]
  - DYSGEUSIA [None]
  - MOVEMENT DISORDER [None]
